FAERS Safety Report 10519361 (Version 1)
Quarter: 2014Q4

REPORT INFORMATION
  Report Type: Spontaneous
  Country: US (occurrence: US)
  Receive Date: 20141015
  Receipt Date: 20141015
  Transmission Date: 20150528
  Serious: No
  Sender: FDA-Public Use
  Company Number: US-EISAI MEDICAL RESEARCH-EC-2014-000717

PATIENT
  Age: 50 Year
  Sex: Male
  Weight: 94 kg

DRUGS (3)
  1. BELVIQ [Suspect]
     Active Substance: LORCASERIN HYDROCHLORIDE
     Indication: WEIGHT DECREASED
     Route: 048
     Dates: start: 201410
  2. DEPAKOTE [Concomitant]
     Active Substance: DIVALPROEX SODIUM
     Route: 048
  3. BUPROPION [Concomitant]
     Active Substance: BUPROPION
     Route: 048

REACTIONS (2)
  - Drug ineffective [Unknown]
  - Hunger [Unknown]

NARRATIVE: CASE EVENT DATE: 201410
